FAERS Safety Report 4582149-6 (Version None)
Quarter: 2005Q1

REPORT INFORMATION
  Report Type: 
  Country: None (occurrence: None)
  Receive Date: 20050119
  Receipt Date: 20040209
  Transmission Date: 20050727
  Serious: Yes (Other)
  Sender: FDA-Public Use
  Company Number: A03200400410

PATIENT
  Age: 47 Year
  Sex: Female
  Weight: 54.4316 kg

DRUGS (2)
  1. PLAVIX [Suspect]
     Indication: STENT PLACEMENT
     Dosage: 75 MG QD - ORAL
     Route: 048
     Dates: start: 20040207, end: 20040208
  2. ESTRADIOL [Concomitant]

REACTIONS (5)
  - EYE SWELLING [None]
  - HYPERHIDROSIS [None]
  - RASH MACULAR [None]
  - SKIN BURNING SENSATION [None]
  - SWELLING FACE [None]
